FAERS Safety Report 4567070-1 (Version None)
Quarter: 2005Q1

REPORT INFORMATION
  Report Type: 
  Country: None (occurrence: None)
  Receive Date: 20050201
  Receipt Date: 20050121
  Transmission Date: 20050727
  Serious: Yes (Hospitalization)
  Sender: FDA-Public Use
  Company Number: CH-ROCHE-393067

PATIENT
  Age: 43 Year
  Sex: Female

DRUGS (3)
  1. ROACCUTANE [Suspect]
     Indication: ACNE
     Route: 048
     Dates: start: 20041015, end: 20050113
  2. FLUOXETINE [Concomitant]
     Indication: DEPRESSION
     Route: 048
  3. FELDEN [Concomitant]
     Indication: HEADACHE
     Route: 048
     Dates: start: 20040615

REACTIONS (7)
  - ANGIONEUROTIC OEDEMA [None]
  - ASCITES [None]
  - HEPATOMEGALY [None]
  - IRON DEFICIENCY ANAEMIA [None]
  - PLEURAL EFFUSION [None]
  - PULMONARY CONGESTION [None]
  - VAGINAL HAEMORRHAGE [None]
